FAERS Safety Report 14342474 (Version 2)
Quarter: 2018Q1

REPORT INFORMATION
  Report Type: Spontaneous
  Country: DE (occurrence: DE)
  Receive Date: 20180102
  Receipt Date: 20180130
  Transmission Date: 20180509
  Serious: Yes (Other)
  Sender: FDA-Public Use
  Company Number: DE-BAYER-2017-050092

PATIENT
  Age: 22 Year
  Sex: Female
  Weight: 63 kg

DRUGS (1)
  1. JAYDESS [Suspect]
     Active Substance: LEVONORGESTREL
     Dosage: 14 MCG/24HR, CONT
     Route: 015
     Dates: start: 20150914

REACTIONS (7)
  - Premature delivery [None]
  - Drug ineffective [None]
  - Placental insufficiency [None]
  - Genital haemorrhage [None]
  - Imminent abortion [None]
  - Pregnancy with contraceptive device [None]
  - Pre-eclampsia [None]

NARRATIVE: CASE EVENT DATE: 2017
